FAERS Safety Report 5926122-1 (Version None)
Quarter: 2008Q4

REPORT INFORMATION
  Report Type: 
  Country: None (occurrence: None)
  Receive Date: 20081021
  Receipt Date: 20081010
  Transmission Date: 20090506
  Serious: Yes (Hospitalization)
  Sender: FDA-Public Use
  Company Number: JP-GILEAD-E2B_00000226

PATIENT
  Age: 32 Year
  Sex: Male

DRUGS (1)
  1. HEPSERA [Suspect]
     Indication: DRUG USE FOR UNKNOWN INDICATION
     Dosage: 10MG PER DAY
     Route: 048
     Dates: start: 20081008

REACTIONS (1)
  - PLATELET COUNT DECREASED [None]
